FAERS Safety Report 4548219-3 (Version None)
Quarter: 2005Q1

REPORT INFORMATION
  Report Type: 
  Country: None (occurrence: None)
  Receive Date: 20050105
  Receipt Date: 20050105
  Transmission Date: 20050727
  Serious: Yes (Hospitalization, Disabling)
  Sender: FDA-Public Use
  Company Number: None

PATIENT
  Age: 18 Year
  Sex: Male
  Weight: 70.3075 kg

DRUGS (1)
  1. STRATTERA [Suspect]
     Indication: ATTENTION DEFICIT/HYPERACTIVITY DISORDER
     Dosage: 2 TIMES DAILY
     Dates: start: 20030601

REACTIONS (14)
  - ABDOMINAL PAIN [None]
  - CHILLS [None]
  - CHROMATURIA [None]
  - FATIGUE [None]
  - FEELING ABNORMAL [None]
  - HEADACHE [None]
  - HYPERHIDROSIS [None]
  - INFLUENZA LIKE ILLNESS [None]
  - LIVER DISORDER [None]
  - NAUSEA [None]
  - NERVOUS SYSTEM DISORDER [None]
  - PYREXIA [None]
  - VISUAL ACUITY REDUCED [None]
  - VOMITING [None]
